FAERS Safety Report 7828533-6 (Version None)
Quarter: 2011Q4

REPORT INFORMATION
  Report Type: 
  Country: None (occurrence: None)
  Receive Date: 20111020
  Receipt Date: 20111017
  Transmission Date: 20120403
  Serious: Yes (Other)
  Sender: FDA-Public Use
  Company Number: US-ROCHE-1005287

PATIENT
  Sex: Female

DRUGS (1)
  1. XOLAIR [Suspect]
     Indication: ASTHMA

REACTIONS (4)
  - AUTOIMMUNE DISORDER [None]
  - FEELING ABNORMAL [None]
  - EOSINOPHIL COUNT INCREASED [None]
  - FATIGUE [None]
